FAERS Safety Report 11086429 (Version 1)
Quarter: 2015Q2

REPORT INFORMATION
  Report Type: Report from Study
  Country: FR (occurrence: FR)
  Receive Date: 20150504
  Receipt Date: 20150504
  Transmission Date: 20150821
  Serious: Yes (Other)
  Sender: FDA-Public Use
  Company Number: FR-ROCHE-1566232

PATIENT

DRUGS (3)
  1. BEVACIZUMAB [Suspect]
     Active Substance: BEVACIZUMAB
     Indication: NEOPLASM
     Route: 065
  2. SORAFENIB [Suspect]
     Active Substance: SORAFENIB
     Indication: NEOPLASM
     Route: 065
  3. SUNITINIB [Suspect]
     Active Substance: SUNITINIB
     Indication: NEOPLASM
     Route: 065

REACTIONS (6)
  - Glomerulonephritis membranous [Unknown]
  - IgA nephropathy [Unknown]
  - Diabetic nephropathy [Unknown]
  - Focal segmental glomerulosclerosis [Unknown]
  - Glomerulonephritis rapidly progressive [Unknown]
  - Thrombotic microangiopathy [Unknown]
